FAERS Safety Report 8608092-0 (Version None)
Quarter: 2012Q3

REPORT INFORMATION
  Report Type: 
  Country: None (occurrence: None)
  Receive Date: 20120821
  Receipt Date: 20120813
  Transmission Date: 20120928
  Serious: Yes (Hospitalization)
  Sender: FDA-Public Use
  Company Number: NL-TEVA-353756ISR

PATIENT
  Age: 62 Year
  Sex: Female

DRUGS (6)
  1. VORICONAZOLE [Interacting]
     Dosage: MAINTENANCE DOSE (425MG)
     Route: 042
  2. CARBAMAZEPINE [Suspect]
     Indication: BIPOLAR DISORDER
     Route: 048
     Dates: start: 20050101
  3. VORICONAZOLE [Interacting]
     Indication: FUNGAL INFECTION
     Dosage: LOADING DOSE FOR 1 DAY
     Route: 048
  4. AMPHOTERICIN B [Concomitant]
     Indication: FUNGAL INFECTION
     Route: 065
  5. VORICONAZOLE [Interacting]
     Dosage: MAINTENANCE DOSE
     Route: 048
  6. VORICONAZOLE [Interacting]
     Dosage: LOADING DOSE OF 6 MG/KG (510MG)
     Route: 040

REACTIONS (2)
  - DRUG LEVEL BELOW THERAPEUTIC [None]
  - POTENTIATING DRUG INTERACTION [None]
